FAERS Safety Report 23343364 (Version 1)
Quarter: 2023Q4

REPORT INFORMATION
  Report Type: Spontaneous
  Country: US (occurrence: US)
  Receive Date: 20231227
  Receipt Date: 20231227
  Transmission Date: 20240109
  Serious: Yes (Hospitalization)
  Sender: FDA-Public Use
  Company Number: US-BEH-2023166734

PATIENT
  Age: 22 Month
  Sex: Male

DRUGS (1)
  1. HUMATE-P [Suspect]
     Active Substance: HUMAN COAGULATION FACTOR VIII/VON WILLEBRAND FACTOR COMPLEX
     Indication: Von Willebrand^s disease
     Dosage: 340 INTERNATIONAL UNIT, ONE TIME FOR ONE DOSE
     Route: 042
     Dates: start: 202310

REACTIONS (1)
  - Traumatic haemorrhage [Unknown]

NARRATIVE: CASE EVENT DATE: 20231208
